FAERS Safety Report 9325710 (Version 1)
Quarter: 2013Q2

REPORT INFORMATION
  Report Type: Spontaneous
  Country: US (occurrence: US)
  Receive Date: 20130604
  Receipt Date: 20130604
  Transmission Date: 20140414
  Serious: No
  Sender: FDA-Public Use
  Company Number: US-009507513-1305USA017107

PATIENT
  Age: 18 Year
  Sex: Female

DRUGS (2)
  1. NUVARING [Suspect]
     Indication: MENSTRUAL CYCLE MANAGEMENT
     Dosage: 4 WEEKS IN, NO BREAK
     Route: 067
     Dates: start: 201212
  2. NUVARING [Suspect]
     Indication: CONTRACEPTION

REACTIONS (4)
  - Haemorrhoids [Unknown]
  - Abdominal pain [Unknown]
  - Acne [Unknown]
  - Drug prescribing error [Unknown]
